FAERS Safety Report 5393918-7 (Version None)
Quarter: 2007Q3

REPORT INFORMATION
  Report Type: 
  Country: None (occurrence: None)
  Receive Date: 20070723
  Receipt Date: 20061103
  Transmission Date: 20080115
  Serious: No
  Sender: FDA-Public Use
  Company Number: A0626175A

PATIENT
  Age: 69 Year
  Sex: Male

DRUGS (4)
  1. AVANDIA [Suspect]
     Dosage: 8MG PER DAY
     Route: 048
     Dates: end: 20061031
  2. FLOMAX [Concomitant]
  3. LISINOPRIL [Concomitant]
  4. PROPRANOLOL [Concomitant]

REACTIONS (2)
  - ARTHRITIS [None]
  - MYALGIA [None]
